FAERS Safety Report 5278299-1 (Version None)
Quarter: 2007Q1

REPORT INFORMATION
  Report Type: 
  Country: None (occurrence: None)
  Receive Date: 20070328
  Receipt Date: 20070326
  Transmission Date: 20070707
  Serious: Yes (Other)
  Sender: FDA-Public Use
  Company Number: DE-BRISTOL-MYERS SQUIBB COMPANY-13727094

PATIENT
  Sex: Female

DRUGS (1)
  1. LUMINITY [Suspect]
     Route: 042
     Dates: start: 20070322

REACTIONS (1)
  - ANAPHYLACTOID REACTION [None]
